FAERS Safety Report 5407765-0 (Version None)
Quarter: 2007Q3

REPORT INFORMATION
  Report Type: 
  Country: None (occurrence: None)
  Receive Date: 20070807
  Receipt Date: 20070725
  Transmission Date: 20080115
  Serious: Yes (Other)
  Sender: FDA-Public Use
  Company Number: US-SHR-US-2007-027316

PATIENT
  Age: 32 Year
  Sex: Female

DRUGS (3)
  1. BETASERON [Suspect]
     Indication: RELAPSING-REMITTING MULTIPLE SCLEROSIS
     Dosage: 6 MIU, EVERY 2D
     Route: 058
     Dates: start: 20070606, end: 20070721
  2. BETASERON [Suspect]
     Dosage: 4 MIU, EVERY 2D
     Route: 058
  3. ABILIFY [Concomitant]
     Indication: BIPOLAR DISORDER
     Dates: start: 20070701

REACTIONS (6)
  - DEPRESSION SUICIDAL [None]
  - HYPERSOMNIA [None]
  - INJECTION SITE MASS [None]
  - INJECTION SITE PAIN [None]
  - INJECTION SITE PRURITUS [None]
  - WEIGHT INCREASED [None]
